FAERS Safety Report 8230877-3 (Version None)
Quarter: 2012Q1

REPORT INFORMATION
  Report Type: 
  Country: None (occurrence: None)
  Receive Date: 20120321
  Receipt Date: 20120309
  Transmission Date: 20120608
  Serious: Yes (Hospitalization)
  Sender: FDA-Public Use
  Company Number: 2012-018358

PATIENT
  Age: 74 Year
  Sex: Male

DRUGS (6)
  1. CRESTOR [Concomitant]
  2. XARELTO (RIVAROXABAN) FILM-COATED TABLET [Suspect]
     Indication: ATRIAL FIBRILLATION
     Dosage: 20 MG, HS,
  3. COQ10 (UBIDECARENONE) [Concomitant]
  4. ASPIRIN [Suspect]
  5. SECTRAL [Concomitant]
  6. ZETIA [Concomitant]

REACTIONS (3)
  - HAEMATOCRIT DECREASED [None]
  - EPISTAXIS [None]
  - INTERNATIONAL NORMALISED RATIO DECREASED [None]
